FAERS Safety Report 6212719-0 (Version None)
Quarter: 2009Q2

REPORT INFORMATION
  Report Type: 
  Country: None (occurrence: None)
  Receive Date: 20090529
  Receipt Date: 20090519
  Transmission Date: 20091009
  Serious: Yes (Death, Hospitalization)
  Sender: FDA-Public Use
  Company Number: WAES 0808AUS00320

PATIENT
  Age: 85 Year
  Sex: Male

DRUGS (2)
  1. CAP VORINOSTAT [Suspect]
     Indication: MYCOSIS FUNGOIDES
     Dosage: 400 MG/DAILY
     Route: 048
     Dates: start: 20080813, end: 20080821
  2. CAP VORINOSTAT [Suspect]
     Indication: MYCOSIS FUNGOIDES
     Dosage: 400 MG/DAILY
     Route: 048
     Dates: start: 20080826, end: 20081228

REACTIONS (3)
  - CACHEXIA [None]
  - CELLULITIS [None]
  - PNEUMONIA [None]
